FAERS Safety Report 5567103-X (Version None)
Quarter: 2007Q4

REPORT INFORMATION
  Report Type: 
  Country: None (occurrence: None)
  Receive Date: 20071219
  Receipt Date: 20061024
  Transmission Date: 20080405
  Serious: Yes (Death)
  Sender: FDA-Public Use
  Company Number: US-ROCHE-529539

PATIENT
  Age: 57 Year
  Sex: Male

DRUGS (7)
  1. MYCOPHENOLATE MOFETIL [Suspect]
     Route: 065
  2. TACROLIMUS [Suspect]
     Route: 065
  3. PREDNISONE [Suspect]
     Route: 065
  4. CYCLOSPORINE [Concomitant]
  5. AMFOTERICIN B [Concomitant]
  6. 5-FC [Concomitant]
  7. AMPHOTERICIN B [Concomitant]

REACTIONS (1)
  - ACUTE MYOCARDIAL INFARCTION [None]
